FAERS Safety Report 9279322 (Version 1)
Quarter: 2013Q2

REPORT INFORMATION
  Report Type: Spontaneous
  Country: CN (occurrence: None)
  Receive Date: 20130501
  Receipt Date: 20130501
  Transmission Date: 20140414
  Serious: Yes (Hospitalization)
  Sender: FDA-Public Use
  Company Number: INT_00246_2013

PATIENT
  Age: 22 Year
  Sex: Female
  Weight: 68 kg

DRUGS (1)
  1. CEFTRIAXONE (CEFTRIAXONE) [Suspect]
     Indication: UPPER RESPIRATORY TRACT INFECTION
     Dosage: 1 DAY UNTIL NOT CONTINUING
     Route: 042

REACTIONS (2)
  - Calculus ureteric [None]
  - Renal failure acute [None]
